FAERS Safety Report 16151924 (Version 2)
Quarter: 2019Q2

REPORT INFORMATION
  Report Type: Spontaneous
  Country: IT (occurrence: IT)
  Receive Date: 20190403
  Receipt Date: 20190429
  Transmission Date: 20190711
  Serious: Yes (Other)
  Sender: FDA-Public Use
  Company Number: IT-MYLANLABS-2019M1029443

PATIENT
  Age: 73 Year
  Sex: Male

DRUGS (1)
  1. VANCOMYCIN [Suspect]
     Active Substance: VANCOMYCIN
     Indication: SEPSIS
     Dosage: UNK
     Route: 042
     Dates: start: 20181116, end: 20181123

REACTIONS (1)
  - Cholestasis [Recovering/Resolving]

NARRATIVE: CASE EVENT DATE: 20181120
